FAERS Safety Report 4438859-4 (Version None)
Quarter: 2004Q3

REPORT INFORMATION
  Report Type: 
  Country: None (occurrence: None)
  Receive Date: 20040901
  Receipt Date: 20040826
  Transmission Date: 20050211
  Serious: Yes (Hospitalization)
  Sender: FDA-Public Use
  Company Number: 200412770JP

PATIENT
  Age: 35 Year
  Sex: Male

DRUGS (2)
  1. KETEK [Suspect]
     Indication: GLOSSITIS
     Route: 048
     Dates: start: 20040810, end: 20040810
  2. KETEK [Suspect]
     Indication: LARYNGOPHARYNGITIS
     Route: 048
     Dates: start: 20040810, end: 20040810

REACTIONS (1)
  - BLISTER [None]
